FAERS Safety Report 5456760-4 (Version None)
Quarter: 2007Q3

REPORT INFORMATION
  Report Type: 
  Country: None (occurrence: None)
  Receive Date: 20070918
  Receipt Date: 20070906
  Transmission Date: 20080115
  Serious: Yes (Hospitalization, Other)
  Sender: FDA-Public Use
  Company Number: US-PFIZER INC-2003037652

PATIENT
  Sex: Female
  Weight: 48.5 kg

DRUGS (2)
  1. DILANTIN [Suspect]
     Indication: PARTIAL SEIZURES
     Dosage: DAILY DOSE:450MG
     Route: 048
  2. DILANTIN [Suspect]
     Dosage: DAILY DOSE:50MG
     Route: 048

REACTIONS (7)
  - ACTIVITIES OF DAILY LIVING IMPAIRED [None]
  - ANTICONVULSANT DRUG LEVEL DECREASED [None]
  - CONVULSION [None]
  - CUTANEOUS LUPUS ERYTHEMATOSUS [None]
  - DYSMENORRHOEA [None]
  - IMPAIRED HEALING [None]
  - PARTIAL SEIZURES [None]
